FAERS Safety Report 4309545-6 (Version None)
Quarter: 2004Q1

REPORT INFORMATION
  Report Type: 
  Country: None (occurrence: None)
  Receive Date: 20040301
  Receipt Date: 20040212
  Transmission Date: 20041129
  Serious: Yes (Life-Threatening, Hospitalization)
  Sender: FDA-Public Use
  Company Number: 20040200133

PATIENT
  Age: 3 Year
  Sex: Female

DRUGS (1)
  1. ATIVAN [Suspect]
     Indication: MEDICATION ERROR
     Dosage: 2 MG ONCE

REACTIONS (2)
  - CARDIAC ARREST [None]
  - MEDICATION ERROR [None]
